FAERS Safety Report 9658872 (Version 2)
Quarter: 2014Q1

REPORT INFORMATION
  Report Type: Report from Study
  Country: BR (occurrence: BR)
  Receive Date: 20131030
  Receipt Date: 20140321
  Transmission Date: 20141002
  Serious: Yes (Other)
  Sender: FDA-Public Use
  Company Number: BR-US-EMD SERONO, INC.-7245219

PATIENT
  Age: 45 Year
  Sex: Female

DRUGS (7)
  1. REBIF [Suspect]
     Indication: RELAPSING-REMITTING MULTIPLE SCLEROSIS
     Dates: start: 20120402
  2. ATENOLOL [Concomitant]
     Indication: HYPERTENSION
  3. ATENOLOL [Concomitant]
  4. PANTOPRAZOLE [Concomitant]
     Indication: GASTROOESOPHAGEAL REFLUX DISEASE
  5. EXODUS [Concomitant]
     Indication: DEPRESSIVE SYMPTOM
     Dates: start: 201204
  6. OXCARBAZEPINE [Concomitant]
     Indication: EPILEPSY
  7. OXCARBAZEPINE [Concomitant]
     Dates: start: 201304

REACTIONS (5)
  - Petit mal epilepsy [Recovered/Resolved]
  - Multiple sclerosis relapse [Not Recovered/Not Resolved]
  - Emotional disorder [Unknown]
  - Malaise [Unknown]
  - Condition aggravated [Unknown]
